FAERS Safety Report 8078388-2 (Version None)
Quarter: 2012Q1

REPORT INFORMATION
  Report Type: 
  Country: None (occurrence: None)
  Receive Date: 20120123
  Receipt Date: 20120120
  Transmission Date: 20120608
  Serious: Yes (Other)
  Sender: FDA-Public Use
  Company Number: US-GDP-11411792

PATIENT
  Sex: Female

DRUGS (2)
  1. METROCREAM [Suspect]
     Indication: ROSACEA
     Dosage: (TOPICAL)
     Route: 061
     Dates: start: 20100609, end: 20110701
  2. SPRINTEC [Concomitant]

REACTIONS (1)
  - PARAESTHESIA [None]
